FAERS Safety Report 5919697-X (Version None)
Quarter: 2008Q4

REPORT INFORMATION
  Report Type: 
  Country: None (occurrence: None)
  Receive Date: 20081010
  Receipt Date: 20080926
  Transmission Date: 20090506
  Serious: Yes (Hospitalization, Other)
  Sender: FDA-Public Use
  Company Number: ENT 2008-0135

PATIENT
  Age: 68 Year
  Sex: Male

DRUGS (5)
  1. COMTAN [Suspect]
     Indication: DRUG EFFECT DECREASED
     Dosage: 500 MG, ORAL
     Route: 048
     Dates: start: 20080301, end: 20080801
  2. NEODOPASOL [Concomitant]
  3. URSO 250 [Concomitant]
  4. LEVODOPA BENSERAZIDE [Concomitant]
  5. PRAMIPEXOLE DIHYDROCHLORIDE [Concomitant]

REACTIONS (9)
  - ANOREXIA [None]
  - ASPARTATE AMINOTRANSFERASE INCREASED [None]
  - BLOOD LACTATE DEHYDROGENASE INCREASED [None]
  - BONE MARROW FAILURE [None]
  - C-REACTIVE PROTEIN INCREASED [None]
  - HEADACHE [None]
  - HEPATIC FUNCTION ABNORMAL [None]
  - HYPERTHERMIA [None]
  - WHITE BLOOD CELL COUNT DECREASED [None]
